FAERS Safety Report 5757983-7 (Version None)
Quarter: 2008Q2

REPORT INFORMATION
  Report Type: 
  Country: None (occurrence: None)
  Receive Date: 20080530
  Receipt Date: 20080515
  Transmission Date: 20081010
  Serious: Yes (Death)
  Sender: FDA-Public Use
  Company Number: 2008AL004853

PATIENT
  Age: 70 Year
  Sex: Male

DRUGS (14)
  1. DIGOXIN [Suspect]
     Dosage: 0.25 MG, PO
     Route: 048
     Dates: start: 20041015, end: 20080317
  2. SPIRONOLACTONE [Concomitant]
  3. FURESOMIDE [Concomitant]
  4. NORVASC [Concomitant]
  5. NAPROXEN [Concomitant]
  6. HYDRALAZINE HCL [Concomitant]
  7. BIDIL [Concomitant]
  8. ENALAPRIL MALEATE [Concomitant]
  9. COREG [Concomitant]
  10. METOLAZONE [Concomitant]
  11. MEXILETINE HYDROCHLORIDE [Concomitant]
  12. WARFARIN SODIUM [Concomitant]
  13. POTASSIUM CHLORIDE [Concomitant]
  14. CARVEDILOL [Concomitant]

REACTIONS (5)
  - CARDIAC DISORDER [None]
  - CARDIAC FAILURE CONGESTIVE [None]
  - DIZZINESS [None]
  - NAUSEA [None]
  - VOMITING [None]
